FAERS Safety Report 8765788 (Version 3)
Quarter: 2013Q1

REPORT INFORMATION
  Report Type: Spontaneous
  Country: US (occurrence: US)
  Receive Date: 20120904
  Receipt Date: 20130212
  Transmission Date: 20140127
  Serious: No
  Sender: FDA-Public Use
  Company Number: US-PFIZER INC-2012215062

PATIENT
  Age: 86 Year
  Sex: Female

DRUGS (2)
  1. ALDACTONE [Suspect]
     Indication: HYPERTENSION
     Dosage: 25 MG, 2X/DAY
     Dates: start: 200912, end: 2012
  2. ALDACTONE [Suspect]
     Indication: OEDEMA

REACTIONS (5)
  - Poor quality drug administered [Unknown]
  - Urine odour abnormal [Recovered/Resolved]
  - Sensation of heaviness [Recovered/Resolved]
  - Arthralgia [Recovered/Resolved]
  - Peripheral coldness [Recovered/Resolved]
